FAERS Safety Report 12924060 (Version 2)
Quarter: 2016Q4

REPORT INFORMATION
  Report Type: Spontaneous
  Country: GB (occurrence: GB)
  Receive Date: 20161109
  Receipt Date: 20161118
  Transmission Date: 20170207
  Serious: Yes (Hospitalization, Other)
  Sender: FDA-Public Use
  Company Number: GB-HIKMA PHARMACEUTICALS CO. LTD-2016GB011776

PATIENT

DRUGS (5)
  1. ETANERCEPT [Concomitant]
     Active Substance: ETANERCEPT
     Dosage: RECEIVED FOR OVE A 2 YEAR PERIOD
  2. LEFLUNOMIDE. [Concomitant]
     Active Substance: LEFLUNOMIDE
     Dosage: RECEIVED FOR OVE A 2 YEAR PERIOD
  3. ADALIMUMAB [Concomitant]
     Active Substance: ADALIMUMAB
     Dosage: RECEIVED FOR OVE A 2 YEAR PERIOD
  4. METHOTREXATE (METHOTREXATE SODIUM) [Concomitant]
     Active Substance: METHOTREXATE SODIUM
     Dosage: 20 MG, WEEKLY
  5. INFLIXIMAB [Suspect]
     Active Substance: INFLIXIMAB
     Indication: RHEUMATOID ARTHRITIS
     Dosage: 3 MG/KG, EVERY 2 MONTHS FOR 5 YEARS
     Route: 065

REACTIONS (1)
  - Progressive multifocal leukoencephalopathy [Unknown]
